FAERS Safety Report 9951495 (Version 4)
Quarter: 2014Q3

REPORT INFORMATION
  Report Type: Report from Study
  Country: JP (occurrence: JP)
  Receive Date: 20140304
  Receipt Date: 20140714
  Transmission Date: 20150326
  Serious: Yes (Death, Life-Threatening, Hospitalization)
  Sender: FDA-Public Use
  Company Number: JP-SA-2013SA134304

PATIENT
  Age: 55 Year
  Sex: Male
  Weight: 67.85 kg

DRUGS (16)
  1. THYMOGLOBULINE [Suspect]
     Active Substance: LAPINE T-LYMPHOCYTE IMMUNE GLOBULIN
     Indication: ACUTE GRAFT VERSUS HOST DISEASE
     Route: 042
     Dates: start: 20111012, end: 20111012
  2. PROGRAF [Suspect]
     Active Substance: TACROLIMUS\TACROLIMUS ANHYDROUS
     Indication: PROPHYLAXIS AGAINST GRAFT VERSUS HOST DISEASE
     Route: 065
  3. THYMOGLOBULINE [Suspect]
     Active Substance: LAPINE T-LYMPHOCYTE IMMUNE GLOBULIN
     Indication: ACUTE GRAFT VERSUS HOST DISEASE
     Route: 042
     Dates: start: 20111006, end: 20111006
  4. THYMOGLOBULINE [Suspect]
     Active Substance: LAPINE T-LYMPHOCYTE IMMUNE GLOBULIN
     Indication: ACUTE GRAFT VERSUS HOST DISEASE
     Route: 042
     Dates: start: 20110929, end: 20110929
  5. GANCICLOVIR [Concomitant]
     Active Substance: GANCICLOVIR
     Indication: CYTOMEGALOVIRUS TEST POSITIVE
     Dates: start: 20111005
  6. RENIVACE [Concomitant]
     Active Substance: ENALAPRIL
     Indication: HYPERTENSION
     Dates: end: 20111017
  7. TIENAM [Concomitant]
     Active Substance: CILASTATIN SODIUM\IMIPENEM
     Indication: PROPHYLAXIS
     Dates: start: 20110929, end: 20111011
  8. SOLU-MEDROL [Concomitant]
     Active Substance: METHYLPREDNISOLONE SODIUM SUCCINATE
     Indication: PROPHYLAXIS AGAINST GRAFT VERSUS HOST DISEASE
  9. ALESION [Concomitant]
     Active Substance: EPINASTINE HYDROCHLORIDE
     Indication: BRONCHIAL DISORDER
     Dates: end: 20120302
  10. ZOSYN [Concomitant]
     Active Substance: PIPERACILLIN SODIUM\TAZOBACTAM SODIUM
     Indication: INFECTION PROPHYLAXIS
     Dates: start: 20120317, end: 20120329
  11. VALIXA [Concomitant]
     Active Substance: VALGANCICLOVIR
     Indication: CYTOMEGALOVIRUS TEST POSITIVE
     Dates: end: 20120303
  12. CONIEL [Concomitant]
     Active Substance: BENIDIPINE HYDROCHLORIDE
     Indication: HYPERTENSION
     Dates: end: 20111115
  13. NICARPINE [Concomitant]
     Active Substance: NICARDIPINE
     Indication: HYPERTENSION
     Dates: start: 20120314
  14. FOSCAVIR [Suspect]
     Active Substance: FOSCARNET SODIUM
     Indication: CYTOMEGALOVIRUS TEST POSITIVE
     Route: 065
     Dates: start: 20111010, end: 20111201
  15. CORTICOSTEROIDS [Concomitant]
     Active Substance: CORTICOSTEROID NOS
     Indication: ACUTE GRAFT VERSUS HOST DISEASE
     Dates: start: 20110905
  16. SOLU-MEDROL [Concomitant]
     Active Substance: METHYLPREDNISOLONE SODIUM SUCCINATE
     Indication: ACUTE GRAFT VERSUS HOST DISEASE

REACTIONS (10)
  - Anaemia [Recovered/Resolved]
  - Pneumonia [Recovered/Resolved]
  - Pneumonia aspiration [Fatal]
  - Acute respiratory distress syndrome [Recovered/Resolved]
  - Thrombotic microangiopathy [Recovering/Resolving]
  - White blood cell count decreased [Unknown]
  - Thrombotic microangiopathy [Fatal]
  - Renal disorder [Not Recovered/Not Resolved]
  - Platelet count decreased [Unknown]
  - Histiocytosis haematophagic [Not Recovered/Not Resolved]

NARRATIVE: CASE EVENT DATE: 201110
